FAERS Safety Report 5031295-1 (Version None)
Quarter: 2006Q2

REPORT INFORMATION
  Report Type: 
  Country: None (occurrence: None)
  Receive Date: 20060621
  Receipt Date: 20051122
  Transmission Date: 20061013
  Serious: Yes (Hospitalization)
  Sender: FDA-Public Use
  Company Number: ESWYE148517NOV05

PATIENT
  Sex: Female

DRUGS (9)
  1. ENBREL [Interacting]
     Indication: RHEUMATOID ARTHRITIS
     Route: 058
     Dates: start: 20050801
  2. VALPROATE SODIUM [Interacting]
     Indication: EPILEPSY
     Dosage: UNKNOWN
  3. CEMIDON [Suspect]
     Indication: TUBERCULIN TEST POSITIVE
     Dosage: UNKNOWN
  4. CARBAMAZEPINE [Suspect]
     Indication: EPILEPSY
     Dosage: UNKNOWN
     Dates: end: 20051101
  5. CARBAMAZEPINE [Suspect]
     Dosage: UNKNOWN
     Dates: start: 20051101
  6. LUMINAL [Concomitant]
  7. UNSPECIFIED NON-STEROIDAL ANTI-INFLAMMATORY AGENT [Concomitant]
     Dosage: UNKNOWN
  8. DACORTIN [Concomitant]
  9. OMEPRAZOLE [Concomitant]
     Dosage: UNKNOWN

REACTIONS (8)
  - ANTICONVULSANT DRUG LEVEL INCREASED [None]
  - DEAFNESS [None]
  - DEMYELINATION [None]
  - DIFFICULTY IN WALKING [None]
  - DRUG INTERACTION [None]
  - DRUG TOXICITY [None]
  - OPTIC NEURITIS [None]
  - VIIITH NERVE LESION [None]
